FAERS Safety Report 8591380-4 (Version None)
Quarter: 2012Q3

REPORT INFORMATION
  Report Type: 
  Country: None (occurrence: None)
  Receive Date: 20120803
  Receipt Date: 20120803
  Transmission Date: 20120928
  Serious: Yes (Hospitalization)
  Sender: FDA-Public Use
  Company Number: None

PATIENT
  Age: 50 Year
  Sex: Female
  Weight: 45 kg

DRUGS (5)
  1. CA + VIT D [Concomitant]
  2. VITAMIN D [Concomitant]
  3. TEGRETOL [Suspect]
     Indication: CONVULSION
     Dosage: 400 MG QAM PO 200 MG BID@NOON AND MN PO CHRONIC
     Route: 048
  4. METHIMAZOLE [Suspect]
     Dosage: METHIMAZOLE 10 MG PO BID
     Route: 048
  5. PROPRANOLOL [Concomitant]

REACTIONS (4)
  - TRANSIENT ISCHAEMIC ATTACK [None]
  - HYPERTHYROIDISM [None]
  - DRUG INTERACTION [None]
  - DRUG LEVEL ABOVE THERAPEUTIC [None]
